FAERS Safety Report 17308377 (Version 1)
Quarter: 2020Q1

REPORT INFORMATION
  Report Type: Spontaneous
  Country: US (occurrence: US)
  Receive Date: 20200123
  Receipt Date: 20200123
  Transmission Date: 20200409
  Serious: Yes (Other)
  Sender: FDA-Public Use
  Company Number: US-TEVA-2020-US-1170521

PATIENT
  Sex: Female

DRUGS (1)
  1. PROAIR HFA [Suspect]
     Active Substance: ALBUTEROL SULFATE
     Route: 055
     Dates: start: 20190112

REACTIONS (4)
  - Choking [Unknown]
  - Device malfunction [Unknown]
  - Insomnia [Unknown]
  - Near death experience [Unknown]

NARRATIVE: CASE EVENT DATE: 20190112
